FAERS Safety Report 18665129 (Version 4)
Quarter: 2021Q3

REPORT INFORMATION
  Report Type: Spontaneous
  Country: GB (occurrence: GB)
  Receive Date: 20201225
  Receipt Date: 20210818
  Transmission Date: 20211014
  Serious: Yes (Other)
  Sender: FDA-Public Use
  Company Number: GB-BIOVITRUM-2020GB7883

PATIENT
  Age: 58 Year
  Sex: Female

DRUGS (14)
  1. ORFADIN [Suspect]
     Active Substance: NITISINONE
     Indication: ALKAPTONURIA
     Dates: start: 2012
  2. DICLOFENAC [Concomitant]
     Active Substance: DICLOFENAC
     Dates: start: 2013
  3. CO?DYDRAMOL [Concomitant]
     Active Substance: ACETAMINOPHEN\DIHYDROCODEINE
     Dates: start: 2013
  4. HUX D3 [Concomitant]
     Dates: start: 2018
  5. LIRIAL [Concomitant]
     Dates: start: 2013
  6. ALENDRONIC ACID [Concomitant]
     Active Substance: ALENDRONIC ACID
     Dates: start: 2016
  7. HUX D3 [Concomitant]
     Dates: start: 2019
  8. PARACETAMOL [Concomitant]
     Active Substance: ACETAMINOPHEN
     Dates: start: 2013
  9. OXIDIL [Concomitant]
     Active Substance: CEFTRIAXONE SODIUM
     Dosage: 3 20,000IU
     Dates: start: 2020
  10. ALENDRONIC ACID [Concomitant]
     Active Substance: ALENDRONIC ACID
     Dates: start: 2018
  11. DICLOFENAC [Concomitant]
     Active Substance: DICLOFENAC
     Dates: start: 2014
  12. ALENDRONIC ACID [Concomitant]
     Active Substance: ALENDRONIC ACID
     Dates: start: 2017
  13. ALENDRONIC ACID [Concomitant]
     Active Substance: ALENDRONIC ACID
     Dates: start: 2020
  14. DICLOFENAC [Concomitant]
     Active Substance: DICLOFENAC
     Dates: start: 2017

REACTIONS (3)
  - Cataract [Not Recovered/Not Resolved]
  - Lenticular opacities [Not Recovered/Not Resolved]
  - Amino acid level increased [Not Recovered/Not Resolved]
